FAERS Safety Report 19390546 (Version 1)
Quarter: 2021Q2

REPORT INFORMATION
  Report Type: Spontaneous
  Country: US (occurrence: US)
  Receive Date: 20210608
  Receipt Date: 20210608
  Transmission Date: 20210717
  Serious: No
  Sender: FDA-Public Use
  Company Number: US-BIOGEN-2021BI01018644

PATIENT
  Sex: Female

DRUGS (25)
  1. AVONEX [Suspect]
     Active Substance: INTERFERON BETA-1A
  2. ZETIA [Concomitant]
     Active Substance: EZETIMIBE
     Route: 065
  3. AVONEX [Suspect]
     Active Substance: INTERFERON BETA-1A
  4. LEVOTHYROXINE. [Concomitant]
     Active Substance: LEVOTHYROXINE
     Route: 065
  5. AVONEX [Suspect]
     Active Substance: INTERFERON BETA-1A
  6. AVONEX [Suspect]
     Active Substance: INTERFERON BETA-1A
  7. LINZESS [Concomitant]
     Active Substance: LINACLOTIDE
     Route: 065
  8. WELLBUTRIN [Concomitant]
     Active Substance: BUPROPION HYDROCHLORIDE
     Route: 065
  9. ADVIL [Concomitant]
     Active Substance: IBUPROFEN
     Route: 065
  10. AVONEX [Suspect]
     Active Substance: INTERFERON BETA-1A
  11. SUMATRIPTAN. [Concomitant]
     Active Substance: SUMATRIPTAN
     Route: 065
  12. TYLENOL [Concomitant]
     Active Substance: ACETAMINOPHEN
     Route: 065
  13. AJOVY [Concomitant]
     Active Substance: FREMANEZUMAB-VFRM
     Route: 065
  14. MIRALAX [Concomitant]
     Active Substance: POLYETHYLENE GLYCOL 3350
     Route: 065
  15. AVONEX [Suspect]
     Active Substance: INTERFERON BETA-1A
  16. AVONEX [Suspect]
     Active Substance: INTERFERON BETA-1A
  17. AVONEX [Suspect]
     Active Substance: INTERFERON BETA-1A
  18. AVONEX [Suspect]
     Active Substance: INTERFERON BETA-1A
  19. AVONEX [Suspect]
     Active Substance: INTERFERON BETA-1A
  20. AVONEX [Suspect]
     Active Substance: INTERFERON BETA-1A
     Indication: MULTIPLE SCLEROSIS
     Route: 065
  21. AVONEX [Suspect]
     Active Substance: INTERFERON BETA-1A
  22. AVONEX [Suspect]
     Active Substance: INTERFERON BETA-1A
  23. OMEPRAZOLE. [Concomitant]
     Active Substance: OMEPRAZOLE
     Route: 065
  24. DULOXETINE. [Concomitant]
     Active Substance: DULOXETINE
     Route: 065
  25. NEURONTIN [Concomitant]
     Active Substance: GABAPENTIN
     Route: 065

REACTIONS (2)
  - Depression [Unknown]
  - Drug ineffective [Unknown]
